FAERS Safety Report 16371711 (Version 2)
Quarter: 2019Q2

REPORT INFORMATION
  Report Type: Spontaneous
  Country: AR (occurrence: AR)
  Receive Date: 20190530
  Receipt Date: 20190614
  Transmission Date: 20190711
  Serious: Yes (Other)
  Sender: FDA-Public Use
  Company Number: PHHY2019AR122587

PATIENT
  Sex: Male

DRUGS (2)
  1. TEGRETOL [Suspect]
     Active Substance: CARBAMAZEPINE
     Indication: DEPRESSION
     Dosage: 200 MG (HALF TABLET AT MORNING AND HALF AT NIGHT)
     Route: 065
     Dates: end: 201303
  2. TEGRETOL [Suspect]
     Active Substance: CARBAMAZEPINE
     Dosage: (TAKING IT PROGRESSIVELY)
     Route: 065

REACTIONS (7)
  - Gait disturbance [Recovered/Resolved]
  - Dysphagia [Recovered/Resolved]
  - Mastication disorder [Recovered/Resolved]
  - Dyskinesia [Recovered/Resolved]
  - Wrong technique in product usage process [Unknown]
  - Cerebrovascular accident [Recovered/Resolved]
  - Vascular parkinsonism [Recovered/Resolved]

NARRATIVE: CASE EVENT DATE: 2005
